FAERS Safety Report 18188772 (Version 12)
Quarter: 2024Q4

REPORT INFORMATION
  Report Type: Spontaneous
  Country: US (occurrence: US)
  Receive Date: 20200824
  Receipt Date: 20241028
  Transmission Date: 20250114
  Serious: Yes (Other)
  Sender: SANOFI AVENTIS
  Company Number: US-SA-2020SA224977

PATIENT
  Age: 37 Year
  Sex: Female
  Weight: 56.689 kg

DRUGS (37)
  1. KEVZARA [Suspect]
     Active Substance: SARILUMAB
     Indication: Rheumatoid arthritis
     Dosage: 150 MG, QOW
     Route: 058
     Dates: start: 201910, end: 201910
  2. KEVZARA [Suspect]
     Active Substance: SARILUMAB
     Indication: Crohn^s disease
     Dosage: 150 MG, QW
     Route: 058
     Dates: start: 201910
  3. COVID-19 VACCINE NOS [Suspect]
     Active Substance: COVID-19 VACCINE
  4. PRIVIGEN [Suspect]
     Active Substance: HUMAN IMMUNOGLOBULIN G
     Dosage: UNK
  5. PRIVIGEN [Suspect]
     Active Substance: HUMAN IMMUNOGLOBULIN G
  6. SODIUM CHLORIDE [Concomitant]
     Active Substance: SODIUM CHLORIDE
     Dosage: UNK
  7. SODIUM CHLORIDE [Concomitant]
     Active Substance: SODIUM CHLORIDE
  8. LIDOCAINE [Concomitant]
     Active Substance: LIDOCAINE
     Dosage: UNK
  9. HEPARIN [Concomitant]
     Active Substance: HEPARIN SODIUM
     Dosage: UNK
  10. HEPARIN [Concomitant]
     Active Substance: HEPARIN SODIUM
  11. EPINEPHRINE [Concomitant]
     Active Substance: EPINEPHRINE
     Dosage: UNK
  12. EPINEPHRINE [Concomitant]
     Active Substance: EPINEPHRINE
  13. DIPHENHYDRAMINE [Concomitant]
     Active Substance: DIPHENHYDRAMINE
     Dosage: UNK
  14. DIPHENHYDRAMINE [Concomitant]
     Active Substance: DIPHENHYDRAMINE
  15. ACETAMINOPHEN [Concomitant]
     Active Substance: ACETAMINOPHEN
     Dosage: UNK
  16. ACETAMINOPHEN [Concomitant]
     Active Substance: ACETAMINOPHEN
  17. LMX 4 [Concomitant]
     Dosage: UNK
  18. HIZENTRA [Concomitant]
     Active Substance: HUMAN IMMUNOGLOBULIN G
     Dosage: UNK
  19. FLUDROCORTISONE ACETATE [Concomitant]
     Active Substance: FLUDROCORTISONE ACETATE
     Dosage: UNK
  20. FLUDROCORTISONE ACETATE [Concomitant]
     Active Substance: FLUDROCORTISONE ACETATE
  21. FEMRING [Concomitant]
     Active Substance: ESTRADIOL ACETATE
     Dosage: 0.1 MG/ 24 H
     Route: 067
  22. HYDROCORTISONE [Concomitant]
     Active Substance: HYDROCORTISONE
     Dosage: UNK
  23. DECADRON [Concomitant]
     Active Substance: DEXAMETHASONE
     Dosage: UNK
  24. AJOVY [Concomitant]
     Active Substance: FREMANEZUMAB-VFRM
     Dosage: UNK
  25. RIZATRIPTAN [Concomitant]
     Active Substance: RIZATRIPTAN
     Dosage: UNK
  26. DRISDOL [Concomitant]
     Active Substance: ERGOCALCIFEROL
     Dosage: UNK
  27. PREDNISONE [Concomitant]
     Active Substance: PREDNISONE
     Dosage: UNK
  28. CLOBETASOL [Concomitant]
     Active Substance: CLOBETASOL
     Dosage: UNK
  29. NADOLOL [Concomitant]
     Active Substance: NADOLOL
     Dosage: UNK
  30. ALBUTEROL SULFATE [Concomitant]
     Active Substance: ALBUTEROL SULFATE
     Dosage: UNK
  31. SYNTHROID [Concomitant]
     Active Substance: LEVOTHYROXINE SODIUM
     Dosage: UNK
  32. CYPROHEPTADINE HYDROCHLORIDE [Concomitant]
     Active Substance: CYPROHEPTADINE HYDROCHLORIDE
     Dosage: UNK
  33. ZOFRAN [Concomitant]
     Active Substance: ONDANSETRON HYDROCHLORIDE
     Dosage: UNK
  34. PREDNISONE [Concomitant]
     Active Substance: PREDNISONE
     Dosage: UNK
  35. DECADRON [Concomitant]
     Active Substance: DEXAMETHASONE
     Dosage: UNK
  36. SODIUM CHLORIDE [Concomitant]
     Active Substance: SODIUM CHLORIDE
  37. HYDROXYZINE HYDROCHLORIDE [Concomitant]
     Active Substance: HYDROXYZINE HYDROCHLORIDE

REACTIONS (26)
  - Clostridium difficile infection [Unknown]
  - Syncope [Unknown]
  - Hallucination [Unknown]
  - Headache [Unknown]
  - Hypoglycaemia [Unknown]
  - Nausea [Unknown]
  - Adrenal disorder [Unknown]
  - Chills [Unknown]
  - Fatigue [Unknown]
  - Pyrexia [Unknown]
  - Pain [Unknown]
  - Vomiting [Unknown]
  - Hypotension [Unknown]
  - Asthenia [Unknown]
  - Tachycardia [Unknown]
  - Neutrophil count decreased [Unknown]
  - Red blood cell sedimentation rate increased [Unknown]
  - COVID-19 [Recovered/Resolved]
  - Lipids increased [Unknown]
  - Nausea [Unknown]
  - Skin infection [Unknown]
  - Urticaria [Unknown]
  - Adverse drug reaction [Recovered/Resolved]
  - Urinary tract infection [Unknown]
  - Product use in unapproved indication [Unknown]
  - Inappropriate schedule of product administration [Unknown]

NARRATIVE: CASE EVENT DATE: 20191001
